FAERS Safety Report 20657944 (Version 1)
Quarter: 2022Q1

REPORT INFORMATION
  Report Type: Spontaneous
  Country: ES (occurrence: ES)
  Receive Date: 20220331
  Receipt Date: 20220331
  Transmission Date: 20220423
  Serious: Yes (Death, Hospitalization)
  Sender: FDA-Public Use
  Company Number: None

PATIENT
  Age: 67 Year
  Sex: Male

DRUGS (5)
  1. CLARITHROMYCIN [Interacting]
     Active Substance: CLARITHROMYCIN
     Indication: Panniculitis
     Dosage: 500 MG, Q12H
     Route: 048
     Dates: start: 20211202, end: 20211209
  2. GABAPENTIN [Interacting]
     Active Substance: GABAPENTIN
     Indication: Pain
     Dosage: 300 MG, 8 YEARS
     Route: 048
     Dates: start: 20211201, end: 20211209
  3. TACROLIMUS [Interacting]
     Active Substance: TACROLIMUS
     Indication: Solid organ transplant
     Dosage: 2.5 MG, QD
     Route: 048
     Dates: start: 20211116, end: 20220109
  4. SULFAMETHOXAZOLE\TRIMETHOPRIM [Interacting]
     Active Substance: SULFAMETHOXAZOLE\TRIMETHOPRIM
     Indication: Antifungal prophylaxis
     Dosage: 160 MG, QD
     Route: 048
     Dates: start: 20211202, end: 20211209
  5. TRAMADOL HYDROCHLORIDE [Concomitant]
     Active Substance: TRAMADOL HYDROCHLORIDE
     Indication: Pain
     Dosage: 50 MG, Q8H
     Route: 048
     Dates: start: 20211201, end: 20211209

REACTIONS (1)
  - Acute kidney injury [Fatal]

NARRATIVE: CASE EVENT DATE: 20211207
